FAERS Safety Report 5340628-8 (Version None)
Quarter: 2007Q2

REPORT INFORMATION
  Report Type: 
  Country: None (occurrence: None)
  Receive Date: 20070405
  Receipt Date: 20070130
  Transmission Date: 20071010
  Serious: No
  Sender: FDA-Public Use
  Company Number: US200701006083

PATIENT
  Age: 94 Year
  Sex: Female

DRUGS (6)
  1. CYMBALTA [Suspect]
     Indication: DEPRESSION
     Dosage: 60 MG DAILY (1/D)
     Dates: start: 20060101
  2. MULTIVITAMIN [Concomitant]
  3. NITROFURANTOIN [Concomitant]
  4. EYE DROPS (TETRYZOLINE HYDROCHLORIDE) [Concomitant]
  5. MUCINEX (GUIFENESIN) [Concomitant]
  6. PREVACID [Concomitant]

REACTIONS (3)
  - GAIT DISTURBANCE [None]
  - SOMNOLENCE [None]
  - WEIGHT DECREASED [None]
